FAERS Safety Report 8611904-8 (Version None)
Quarter: 2012Q3

REPORT INFORMATION
  Report Type: 
  Country: None (occurrence: None)
  Receive Date: 20120822
  Receipt Date: 20120810
  Transmission Date: 20120928
  Serious: Yes (Hospitalization, Other)
  Sender: FDA-Public Use
  Company Number: PHHY2012US069337

PATIENT
  Age: 85 Year
  Sex: Male
  Weight: 75 kg

DRUGS (4)
  1. HYDROCHLOROTHIAZIDE [Suspect]
     Dosage: 12.5 MG, UNK
  2. LOSARTAN POTASSIUM [Concomitant]
     Dosage: 50 MG, UNK
  3. FUROSEMIDE [Concomitant]
     Dosage: 20 MG, UNK
     Route: 042
  4. NADOLOL [Concomitant]
     Dosage: 40 MG, UNK

REACTIONS (19)
  - SPEECH DISORDER [None]
  - FEELING COLD [None]
  - DYSPNOEA [None]
  - DELIRIUM [None]
  - OLIGURIA [None]
  - POLYURIA [None]
  - BLOOD PRESSURE SYSTOLIC INCREASED [None]
  - CHILLS [None]
  - VASODILATATION [None]
  - RALES [None]
  - MENTAL IMPAIRMENT [None]
  - SOMNOLENCE [None]
  - THIRST DECREASED [None]
  - URINE OUTPUT DECREASED [None]
  - CONFUSIONAL STATE [None]
  - CREPITATIONS [None]
  - AGITATION [None]
  - HYPONATRAEMIA [None]
  - MENTAL DISORDER [None]
